FAERS Safety Report 5273615-9 (Version None)
Quarter: 2007Q1

REPORT INFORMATION
  Report Type: 
  Country: None (occurrence: None)
  Receive Date: 20070321
  Receipt Date: 20070321
  Transmission Date: 20070707
  Serious: Yes (Other)
  Sender: FDA-Public Use
  Company Number: None

PATIENT
  Age: 26 Year
  Weight: 89.8122 kg

DRUGS (3)
  1. VALPROATE SODIUM [Suspect]
     Indication: MIGRAINE
     Dosage: 1 GM/100 ML NS Q24H X3 DAYS
     Dates: start: 20070309
  2. PREMARIN [Concomitant]
  3. ZOLOFT [Concomitant]

REACTIONS (1)
  - CHEST PAIN [None]
